FAERS Safety Report 12345768 (Version 2)
Quarter: 2016Q3

REPORT INFORMATION
  Report Type: Report from Study
  Country: US (occurrence: US)
  Receive Date: 20160509
  Receipt Date: 20160708
  Transmission Date: 20161109
  Serious: No
  Sender: FDA-Public Use
  Company Number: US-AMGEN-USASL2016050050

PATIENT
  Age: 68 Year
  Sex: Female

DRUGS (3)
  1. HUMIRA [Suspect]
     Active Substance: ADALIMUMAB
     Indication: RHEUMATOID ARTHRITIS
     Dosage: 40 MG, 2 TIMES/WK
     Route: 058
     Dates: start: 20151028, end: 20151224
  2. ENBREL [Suspect]
     Active Substance: ETANERCEPT
     Indication: RHEUMATOID ARTHRITIS
  3. ENBREL [Suspect]
     Active Substance: ETANERCEPT
     Indication: SARCOIDOSIS
     Dosage: UNK
     Route: 065
     Dates: end: 2016

REACTIONS (9)
  - Injection site erythema [Recovered/Resolved]
  - Intentional product misuse [Unknown]
  - Off label use [Unknown]
  - Injection site pruritus [Recovered/Resolved]
  - Drug ineffective [Unknown]
  - Injection site pain [Recovered/Resolved]
  - Weight decreased [Unknown]
  - Arthralgia [Unknown]
  - Laboratory test abnormal [Unknown]

NARRATIVE: CASE EVENT DATE: 2015
